FAERS Safety Report 14307998 (Version 1)
Quarter: 2017Q4

REPORT INFORMATION
  Report Type: Spontaneous
  Country: US (occurrence: US)
  Receive Date: 20171220
  Receipt Date: 20171220
  Transmission Date: 20180321
  Serious: No
  Sender: FDA-Public Use
  Company Number: US-CELGENEUS-USA-20171205388

PATIENT
  Sex: Female

DRUGS (1)
  1. OTEZLA [Suspect]
     Active Substance: APREMILAST
     Indication: PSORIASIS
     Dosage: 40 MILLIGRAM
     Route: 048

REACTIONS (8)
  - Unevaluable event [Unknown]
  - Rhinorrhoea [Unknown]
  - Gastrointestinal disorder [Unknown]
  - Blood pressure increased [Unknown]
  - Anorectal discomfort [Unknown]
  - Heart rate increased [Unknown]
  - Headache [Unknown]
  - Insomnia [Unknown]
